FAERS Safety Report 5054559-4 (Version None)
Quarter: 2006Q3

REPORT INFORMATION
  Report Type: 
  Country: None (occurrence: None)
  Receive Date: 20060714
  Receipt Date: 20060627
  Transmission Date: 20061208
  Serious: Yes (Other)
  Sender: FDA-Public Use
  Company Number: AU200607000239

PATIENT
  Age: 24 Year
  Sex: Female

DRUGS (7)
  1. ZYPREXA [Suspect]
     Indication: SCHIZOPHRENIA
     Dosage: SEE IMAGE
     Dates: start: 20060601, end: 20060627
  2. ZYPREXA [Suspect]
     Indication: SCHIZOPHRENIA
     Dosage: SEE IMAGE
     Dates: start: 20050101
  3. RISPERIDONE [Concomitant]
  4. DOXORUBICIN HCL [Concomitant]
  5. BLEOMYCIN [Concomitant]
  6. VINBLASTINE SULFATE [Concomitant]
  7. DACARBAZINE [Concomitant]

REACTIONS (3)
  - HODGKIN'S DISEASE NODULAR SCLEROSIS STAGE UNSPECIFIED [None]
  - NEUTROPHIL COUNT DECREASED [None]
  - WHITE BLOOD CELL COUNT DECREASED [None]
